FAERS Safety Report 17909694 (Version 2)
Quarter: 2020Q4

REPORT INFORMATION
  Report Type: Spontaneous
  Country: JP (occurrence: JP)
  Receive Date: 20200617
  Receipt Date: 20201103
  Transmission Date: 20210113
  Serious: Yes (Hospitalization, Other)
  Sender: FDA-Public Use
  Company Number: JP-GLAXOSMITHKLINE-JP2020JPN094412

PATIENT
  Age: 69 Year
  Sex: Male
  Weight: 71 kg

DRUGS (17)
  1. LAMICTAL [Suspect]
     Active Substance: LAMOTRIGINE
     Indication: EPILEPSY
     Dosage: 50 MG, QD
     Route: 048
     Dates: start: 20181030, end: 20181108
  2. XARELTO TABLETS [Concomitant]
     Indication: ATRIAL FIBRILLATION
     Dosage: 15 MG
     Route: 048
  3. E KEPPRA TABLETS [Concomitant]
     Dosage: UNK
     Route: 048
     Dates: start: 20181031, end: 20181101
  4. TEGRETOL TABLET [Concomitant]
     Indication: EPILEPSY
     Dosage: 100 MG, 1D
     Route: 048
  5. MAGMITT TABLET [Concomitant]
     Indication: CONSTIPATION
     Dosage: 250 MG, 1D
     Route: 048
  6. LANSOPRAZOLE-OD TABLETS [Concomitant]
     Indication: GASTROOESOPHAGEAL REFLUX DISEASE
     Dosage: 15 MG, 1D
     Route: 048
     Dates: start: 20181107
  7. TEGRETOL TABLET [Concomitant]
     Dosage: 100 MG, 1D
     Route: 048
     Dates: start: 20181218
  8. NEXIUM [Concomitant]
     Active Substance: ESOMEPRAZOLE MAGNESIUM
     Indication: GASTROOESOPHAGEAL REFLUX DISEASE
     Dosage: 20 MG, 1D
     Route: 048
  9. LAMICTAL [Suspect]
     Active Substance: LAMOTRIGINE
     Dosage: 50 MG, BID
     Route: 048
     Dates: start: 20181109, end: 20181115
  10. LAMICTAL [Suspect]
     Active Substance: LAMOTRIGINE
     Dosage: 75 MG, BID
     Route: 048
     Dates: start: 20181116, end: 20181122
  11. VIMPAT TABLET [Concomitant]
     Indication: EPILEPSY
     Dosage: 100 MG, 1D
     Route: 048
  12. VIMPAT TABLET [Concomitant]
     Dosage: 100 MG, 1D
     Route: 048
     Dates: start: 20181102, end: 20181104
  13. MAGMITT TABLET [Concomitant]
     Dosage: 330 MG, 1D
     Route: 048
     Dates: start: 20181109
  14. ELIQUIS [Concomitant]
     Active Substance: APIXABAN
     Indication: ATRIAL FIBRILLATION
     Dosage: 5 MG, 1D
     Route: 048
  15. LANDSEN [Concomitant]
     Active Substance: CLONAZEPAM
     Dosage: 0.5 MG, 1D
     Route: 048
  16. LAMICTAL [Suspect]
     Active Substance: LAMOTRIGINE
     Dosage: 50 MG, BID
     Route: 048
     Dates: start: 20181123, end: 20181203
  17. E KEPPRA TABLETS [Concomitant]
     Indication: EPILEPSY
     Dosage: 1000 MG, 1D
     Route: 048

REACTIONS (9)
  - Organising pneumonia [Recovering/Resolving]
  - Drug reaction with eosinophilia and systemic symptoms [Recovering/Resolving]
  - Drug eruption [Recovering/Resolving]
  - Liver disorder [Unknown]
  - Product use issue [Unknown]
  - Prescribed overdose [Unknown]
  - Eosinophilic pneumonia [Recovering/Resolving]
  - Pyrexia [Recovering/Resolving]
  - Eosinophilia [Unknown]

NARRATIVE: CASE EVENT DATE: 20181224
